FAERS Safety Report 8520201-0 (Version None)
Quarter: 2012Q3

REPORT INFORMATION
  Report Type: 
  Country: None (occurrence: None)
  Receive Date: 20120719
  Receipt Date: 20120712
  Transmission Date: 20120928
  Serious: Yes (Other)
  Sender: FDA-Public Use
  Company Number: US-JNJFOC-20120706521

PATIENT
  Age: 35 Year
  Sex: Male
  Weight: 86.18 kg

DRUGS (4)
  1. MINOXIDIL [Suspect]
     Route: 061
  2. MINOXIDIL [Suspect]
     Indication: ALOPECIA
     Dosage: HALF OF 1 ML
     Route: 061
     Dates: end: 20120711
  3. BIOTIN [Concomitant]
     Indication: NAIL GROWTH ABNORMAL
     Dosage: 1 TABLET/5,000MG
     Route: 065
  4. BIOTIN [Concomitant]
     Indication: HAIR GROWTH ABNORMAL
     Dosage: 1 TABLET/5,000MG
     Route: 065

REACTIONS (3)
  - UNDERDOSE [None]
  - BLOOD PRESSURE INCREASED [None]
  - HEART RATE INCREASED [None]
